FAERS Safety Report 7468604-X (Version None)
Quarter: 2011Q2

REPORT INFORMATION
  Report Type: 
  Country: None (occurrence: None)
  Receive Date: 20110510
  Receipt Date: 20110223
  Transmission Date: 20111010
  Serious: No
  Sender: FDA-Public Use
  Company Number: US-BAYER-2011-017627

PATIENT
  Sex: Male

DRUGS (1)
  1. AVELOX [Suspect]
     Indication: BRONCHITIS
     Dosage: 400 MG, QD
     Route: 048

REACTIONS (4)
  - SWELLING FACE [None]
  - FLUSHING [None]
  - PRURITUS [None]
  - BODY TEMPERATURE INCREASED [None]
